FAERS Safety Report 25101826 (Version 2)
Quarter: 2025Q2

REPORT INFORMATION
  Report Type: Spontaneous
  Country: IT (occurrence: IT)
  Receive Date: 20250320
  Receipt Date: 20250404
  Transmission Date: 20250716
  Serious: Yes (Hospitalization)
  Sender: ALEXION PHARMACEUTICALS
  Company Number: None

PATIENT
  Age: 3 Day
  Weight: 3 kg

DRUGS (1)
  1. BEYFORTUS [Suspect]
     Active Substance: NIRSEVIMAB-ALIP
     Indication: Rotavirus immunisation
     Route: 065

REACTIONS (4)
  - Cyanosis [Recovered/Resolved]
  - Apathy [Recovered/Resolved]
  - Hyporesponsive to stimuli [Recovered/Resolved]
  - Product use in unapproved indication [Unknown]
